APPROVED DRUG PRODUCT: DYNACIRC
Active Ingredient: ISRADIPINE
Strength: 5MG **Federal Register determination that product was not discontinued or withdrawn for safety or effectiveness reasons**
Dosage Form/Route: CAPSULE;ORAL
Application: N019546 | Product #002
Applicant: SMITHKLINE BEECHAM CORP DBA GLAXOSMITHKLINE
Approved: Dec 20, 1990 | RLD: Yes | RS: No | Type: DISCN